FAERS Safety Report 19695625 (Version 27)
Quarter: 2023Q4

REPORT INFORMATION
  Report Type: Spontaneous
  Country: CA (occurrence: CA)
  Receive Date: 20210813
  Receipt Date: 20231229
  Transmission Date: 20240109
  Serious: Yes (Hospitalization, Other)
  Sender: FDA-Public Use
  Company Number: CA-CELLTRION INC.-2021CA009092

PATIENT

DRUGS (38)
  1. INFLECTRA [Suspect]
     Active Substance: INFLIXIMAB-DYYB
     Indication: Colitis ulcerative
     Dosage: 5 MG/KG, 0, 2, 6 THEN EVERY 8 WEEKS
     Route: 042
     Dates: start: 20210518
  2. INFLECTRA [Suspect]
     Active Substance: INFLIXIMAB-DYYB
     Dosage: 5 MG/KG, 0, 2, 6 THEN EVERY 8 WEEKS
     Route: 042
     Dates: start: 20210602
  3. INFLECTRA [Suspect]
     Active Substance: INFLIXIMAB-DYYB
     Dosage: 5 MG/KG, 0, 2, 6 THEN EVERY 8 WEEKS
     Route: 042
     Dates: start: 20210630
  4. INFLECTRA [Suspect]
     Active Substance: INFLIXIMAB-DYYB
     Dosage: 5 MG/KG, EVERY 4 WEEK, (AFTER 3RD INFUSION AND THEN MAINTAIN AT EVERY 4 WEEKS)
     Route: 042
     Dates: start: 20210728
  5. INFLECTRA [Suspect]
     Active Substance: INFLIXIMAB-DYYB
     Dosage: 5 MG/KG, EVERY 4 WEEK, (AFTER 3RD INFUSION AND THEN MAINTAIN AT EVERY 4 WEEKS)
     Route: 041
     Dates: start: 20210923
  6. INFLECTRA [Suspect]
     Active Substance: INFLIXIMAB-DYYB
     Dosage: 5 MG/KG, EVERY 4 WEEK, (AFTER 3RD INFUSION AND THEN MAINTAIN AT EVERY 4 WEEKS)
     Route: 041
     Dates: start: 20211020
  7. INFLECTRA [Suspect]
     Active Substance: INFLIXIMAB-DYYB
     Dosage: 12.5 MG/KG EVERY 4 WEEKS
     Route: 042
     Dates: start: 20211123
  8. INFLECTRA [Suspect]
     Active Substance: INFLIXIMAB-DYYB
     Dosage: 12.5 MG/KG EVERY 4 WEEKS
     Route: 042
     Dates: start: 20211217
  9. INFLECTRA [Suspect]
     Active Substance: INFLIXIMAB-DYYB
     Dosage: 12.5 MG/KG EVERY 4 WEEKS
     Route: 042
     Dates: start: 20220118
  10. INFLECTRA [Suspect]
     Active Substance: INFLIXIMAB-DYYB
     Dosage: 12.5 MG/KG EVERY 4 WEEKS
     Route: 042
     Dates: start: 20220214
  11. INFLECTRA [Suspect]
     Active Substance: INFLIXIMAB-DYYB
     Dosage: 12.5 MG/KG EVERY 4 WEEKS
     Route: 042
     Dates: start: 20220314
  12. INFLECTRA [Suspect]
     Active Substance: INFLIXIMAB-DYYB
     Dosage: 1100 MG
     Route: 042
     Dates: start: 20220411
  13. INFLECTRA [Suspect]
     Active Substance: INFLIXIMAB-DYYB
     Dosage: 1100 MG (SUPPOSED TO RECEIVE 12.5 MG/KG)
     Route: 042
     Dates: start: 20220509
  14. INFLECTRA [Suspect]
     Active Substance: INFLIXIMAB-DYYB
     Dosage: 1100 MG (SUPPOSED TO RECEIVE 12.5 MG/KG)
     Route: 042
     Dates: start: 20220509
  15. INFLECTRA [Suspect]
     Active Substance: INFLIXIMAB-DYYB
     Dosage: 12.5 MG/KG EVERY 4 WEEKS
     Route: 042
     Dates: start: 20220606
  16. INFLECTRA [Suspect]
     Active Substance: INFLIXIMAB-DYYB
     Dosage: 12.5 MG/KG EVERY 4 WEEKS
     Route: 042
     Dates: start: 20220704
  17. INFLECTRA [Suspect]
     Active Substance: INFLIXIMAB-DYYB
     Dosage: 12.5 MG/KG EVERY 4 WEEKS
     Route: 042
     Dates: start: 20220802
  18. INFLECTRA [Suspect]
     Active Substance: INFLIXIMAB-DYYB
     Dosage: 12.5 MG/KG EVERY 4 WEEKS
     Route: 042
     Dates: start: 20220830
  19. INFLECTRA [Suspect]
     Active Substance: INFLIXIMAB-DYYB
     Dosage: 12.5 MG/KG EVERY 4 WEEKS
     Route: 042
     Dates: start: 20220926
  20. INFLECTRA [Suspect]
     Active Substance: INFLIXIMAB-DYYB
     Dosage: 12.5 MG/KG EVERY 4 WEEKS
     Route: 042
     Dates: start: 20221025
  21. INFLECTRA [Suspect]
     Active Substance: INFLIXIMAB-DYYB
     Dosage: 12.5 MG/KG EVERY 4 WEEKS
     Route: 042
     Dates: start: 20221121
  22. INFLECTRA [Suspect]
     Active Substance: INFLIXIMAB-DYYB
     Dosage: 12.5 MG/KG EVERY 4 WEEKS
     Route: 042
     Dates: start: 20230116
  23. INFLECTRA [Suspect]
     Active Substance: INFLIXIMAB-DYYB
     Dosage: 12.5 MG/KG EVERY 4 WEEKS
     Route: 042
     Dates: start: 20230213
  24. INFLECTRA [Suspect]
     Active Substance: INFLIXIMAB-DYYB
     Dosage: 1200 MG
     Route: 042
     Dates: start: 20230320
  25. INFLECTRA [Suspect]
     Active Substance: INFLIXIMAB-DYYB
     Dosage: 12.5 MG
     Route: 042
     Dates: start: 20230320
  26. INFLECTRA [Suspect]
     Active Substance: INFLIXIMAB-DYYB
     Dosage: 12.5 MG/KG, EVERY 4 WEEKS
     Route: 042
     Dates: start: 20230606
  27. INFLECTRA [Suspect]
     Active Substance: INFLIXIMAB-DYYB
     Dosage: 1200 MG, EVERY 4 WEEKS
     Route: 042
     Dates: start: 20230628
  28. INFLECTRA [Suspect]
     Active Substance: INFLIXIMAB-DYYB
     Dosage: 1200 MG, EVERY 4 WEEKS
     Route: 042
     Dates: start: 20230718
  29. INFLECTRA [Suspect]
     Active Substance: INFLIXIMAB-DYYB
     Dosage: 1150 (12.5 MG/KG) 4 WEEKS 2 DAYS
     Route: 042
     Dates: start: 20230817
  30. INFLECTRA [Suspect]
     Active Substance: INFLIXIMAB-DYYB
     Dosage: 12.5 MG/KG EVERY 4 WEEKS
     Route: 042
     Dates: start: 20231108
  31. CIPRO [Concomitant]
     Active Substance: CIPROFLOXACIN HYDROCHLORIDE
     Dosage: 500 MG
     Route: 048
  32. FLAGYL [Concomitant]
     Active Substance: METRONIDAZOLE\METRONIDAZOLE HYDROCHLORIDE
     Dosage: 250 MG, 3X/DAY X 14 DAYS
     Route: 048
  33. GLUTAMIN [LEVOGLUTAMIDE] [Concomitant]
     Dosage: 1 DF, 1X/DAY
     Route: 048
  34. GLUTAMIN [LEVOGLUTAMIDE] [Concomitant]
     Dosage: UNK, DAILY
     Route: 048
  35. VITAMIN C [Concomitant]
     Active Substance: ASCORBIC ACID
     Dosage: 1 DF, 1X/DAY
     Route: 048
  36. VITAMIN D NOS [Concomitant]
     Active Substance: VITAMIN D NOS
     Dosage: 1 DF, 1X/DAY
     Route: 048
  37. VITAMIN D NOS [Concomitant]
     Active Substance: VITAMIN D NOS
     Dosage: UNK, DAILY
     Route: 048
  38. VITAMINS NOS [Concomitant]
     Active Substance: VITAMINS
     Dosage: 1 DF

REACTIONS (31)
  - Anal abscess [Recovering/Resolving]
  - Condition aggravated [Recovered/Resolved]
  - Drug ineffective [Unknown]
  - Body temperature fluctuation [Not Recovered/Not Resolved]
  - Drug level increased [Unknown]
  - Pain in extremity [Not Recovered/Not Resolved]
  - Oropharyngeal pain [Not Recovered/Not Resolved]
  - Muscular weakness [Not Recovered/Not Resolved]
  - Fatigue [Not Recovered/Not Resolved]
  - Tongue coated [Not Recovered/Not Resolved]
  - Aphthous ulcer [Not Recovered/Not Resolved]
  - Acne cystic [Not Recovered/Not Resolved]
  - Night sweats [Not Recovered/Not Resolved]
  - Eye pain [Not Recovered/Not Resolved]
  - Malnutrition [Unknown]
  - Acne [Not Recovered/Not Resolved]
  - Nasopharyngitis [Not Recovered/Not Resolved]
  - Illness [Recovering/Resolving]
  - Pyrexia [Recovering/Resolving]
  - Cough [Recovering/Resolving]
  - Dyspnoea [Recovering/Resolving]
  - Headache [Recovering/Resolving]
  - Sinus pain [Recovering/Resolving]
  - Frequent bowel movements [Not Recovered/Not Resolved]
  - Infection [Unknown]
  - Influenza [Recovering/Resolving]
  - Off label use [Unknown]
  - Off label use [Unknown]
  - Intentional product use issue [Unknown]
  - Off label use [Unknown]
  - Condition aggravated [Not Recovered/Not Resolved]

NARRATIVE: CASE EVENT DATE: 20210601
